FAERS Safety Report 10028729 (Version 3)
Quarter: 2014Q2

REPORT INFORMATION
  Report Type: Spontaneous
  Country: US (occurrence: US)
  Receive Date: 20140321
  Receipt Date: 20140414
  Transmission Date: 20141212
  Serious: Yes (Other)
  Sender: FDA-Public Use
  Company Number: US-TEVA-470236USA

PATIENT
  Age: 34 Year
  Sex: Female
  Weight: 79.9 kg

DRUGS (5)
  1. PARAGARD 380A [Suspect]
     Indication: CONTRACEPTION
     Route: 015
     Dates: start: 20070813
  2. SYNTHROID [Concomitant]
     Indication: THYROID DISORDER
  3. VYVANSE [Concomitant]
     Indication: DEPRESSION
  4. CYTOMEL [Concomitant]
     Indication: PRODUCT USED FOR UNKNOWN INDICATION
  5. PHENTERMINE [Concomitant]
     Indication: WEIGHT DECREASED

REACTIONS (3)
  - Pregnancy with contraceptive device [Unknown]
  - Device dislocation [Unknown]
  - Drug ineffective [Unknown]
